FAERS Safety Report 18636078 (Version 2)
Quarter: 2021Q1

REPORT INFORMATION
  Report Type: Spontaneous
  Country: US (occurrence: US)
  Receive Date: 20201218
  Receipt Date: 20210219
  Transmission Date: 20210419
  Serious: Yes (Death, Hospitalization)
  Sender: FDA-Public Use
  Company Number: US-TEVA-2020-US-1860007

PATIENT
  Age: 83 Year
  Sex: Male
  Weight: 129.2 kg

DRUGS (25)
  1. VALSARTAN TEVA [Suspect]
     Active Substance: VALSARTAN
     Indication: HYPERTENSION
     Dosage: DOSAGE : 320MG
     Route: 065
     Dates: start: 20180723, end: 20181021
  2. VALSARTAN SOLCO [Suspect]
     Active Substance: VALSARTAN
     Indication: HYPERTENSION
     Dosage: DOSAGE : 320 MG
     Route: 065
     Dates: start: 20160309, end: 20180703
  3. OLMESARTAN TORRENT [Suspect]
     Active Substance: OLMESARTAN
     Indication: HYPERTENSION
     Dosage: DOSAGE : 40 MG
     Route: 065
     Dates: start: 20180728, end: 20190106
  4. PROTONIX [Concomitant]
     Active Substance: PANTOPRAZOLE SODIUM
     Dosage: DOSAGE : 40 MG
     Route: 048
  5. CLARITIN [Concomitant]
     Active Substance: LORATADINE
     Dosage: DOSAGE : 5MG DAILY
     Route: 048
  6. VITAMIN D3 [Concomitant]
     Active Substance: CHOLECALCIFEROL
     Dosage: 1000 UNITS DAILY
     Route: 048
  7. VALSARTAN MACLEODS [Suspect]
     Active Substance: VALSARTAN
     Indication: HYPERTENSION
     Dosage: DOSAGE : 320 MG
     Route: 065
     Dates: start: 20190111, end: 20190411
  8. FAMOTIDINE. [Concomitant]
     Active Substance: FAMOTIDINE
     Dosage: DOSAGE : 40MG, ONCE IN BEDTIME
     Route: 048
  9. VITAMIN B12 [Concomitant]
     Active Substance: CYANOCOBALAMIN
     Dosage: 1000 MICROGRAM DAILY;
     Route: 048
  10. INDOCIN [Concomitant]
     Active Substance: INDOMETHACIN
  11. TESTOSTERONE. [Concomitant]
     Active Substance: TESTOSTERONE
     Dosage: 0.75 ML DAILY 5 REFILLS
     Route: 061
  12. VALSARTAN ACETERIS [Suspect]
     Active Substance: VALSARTAN
     Indication: HYPERTENSION
     Dosage: DOSAGE : 320 MG
     Route: 065
     Dates: start: 20181031, end: 20190129
  13. CIPRO [Concomitant]
     Active Substance: CIPROFLOXACIN HYDROCHLORIDE
     Dosage: DOSAGE : 500MG ONCE EVERY 12 HOURS
     Route: 048
  14. TOPROL XL [Concomitant]
     Active Substance: METOPROLOL SUCCINATE
     Dosage: DOSAGE : 100MG ONCE MORNING
     Route: 048
  15. ZOCOR [Concomitant]
     Active Substance: SIMVASTATIN
     Dosage: DOSAGE : 20MG IN BEDTIME
     Route: 048
  16. TEQUIN [Concomitant]
     Active Substance: GATIFLOXACIN
  17. NOVOLOG [Concomitant]
     Active Substance: INSULIN ASPART
     Dosage: 100 UNITS/ML
  18. PLAVIX [Concomitant]
     Active Substance: CLOPIDOGREL BISULFATE
     Dosage: DOSAGE : 75MG ONCE EVERY MORNING
     Route: 048
  19. ZOFRAN [Concomitant]
     Active Substance: ONDANSETRON HYDROCHLORIDE
     Dosage: DOSAGE : 4MG ONCE EVERY HOUR
     Route: 048
  20. VALSARTAN OHM LABORATORIES [Suspect]
     Active Substance: VALSARTAN
     Indication: HYPERTENSION
     Dosage: DOSAGE : 320 MG
     Route: 065
     Dates: start: 20150120, end: 20160314
  21. DIOVAN [Suspect]
     Active Substance: VALSARTAN
     Dosage: DOSAGE : 320MG ONCE EVERY MORNING
     Route: 048
  22. FENOFIBRATE. [Concomitant]
     Active Substance: FENOFIBRATE
     Dosage: DOSAGE : 145 MG DAILY
     Route: 048
  23. VITAMIN C [Concomitant]
     Active Substance: ASCORBIC ACID
     Dosage: 1000MG DAILY
     Route: 048
  24. ZYCLOPRIM [Concomitant]
     Dosage: DOSAGE ; 300MG ONCE EVERY MORNING
     Route: 048
  25. COMPAZINE [Concomitant]
     Active Substance: PROCHLORPERAZINE MALEATE

REACTIONS (8)
  - Pancytopenia [Not Recovered/Not Resolved]
  - Acute myeloid leukaemia [Fatal]
  - Dyspnoea [Recovered/Resolved]
  - Pancreatitis [Not Recovered/Not Resolved]
  - Pneumonia [Fatal]
  - Microcytic anaemia [Not Recovered/Not Resolved]
  - Cardio-respiratory arrest [Fatal]
  - Sepsis [Fatal]

NARRATIVE: CASE EVENT DATE: 201903
